FAERS Safety Report 19251651 (Version 1)
Quarter: 2021Q2

REPORT INFORMATION
  Report Type: Spontaneous
  Country: JP (occurrence: JP)
  Receive Date: 20210513
  Receipt Date: 20210513
  Transmission Date: 20210717
  Serious: Yes (Hospitalization, Other)
  Sender: FDA-Public Use
  Company Number: JP-LUPIN PHARMACEUTICALS INC.-2021-06785

PATIENT
  Age: 64 Year
  Sex: Male

DRUGS (6)
  1. TACROLIMUS. [Suspect]
     Active Substance: TACROLIMUS
     Indication: ULCERATIVE KERATITIS
     Dosage: UNK UNK, QID
     Route: 061
  2. BETAMETHASONE. [Suspect]
     Active Substance: BETAMETHASONE
     Indication: ULCERATIVE KERATITIS
     Dosage: UNK,8 TIMES DAILY
     Route: 061
  3. GATIFLOXACIN. [Concomitant]
     Active Substance: GATIFLOXACIN
     Indication: ULCERATIVE KERATITIS
     Dosage: UNK UNK, QID
     Route: 061
  4. GATIFLOXACIN. [Concomitant]
     Active Substance: GATIFLOXACIN
     Dosage: UNK
     Route: 061
  5. CYCLOSPORINE. [Suspect]
     Active Substance: CYCLOSPORINE
     Indication: ULCERATIVE KERATITIS
     Dosage: 400 MILLIGRAM, QD
     Route: 065
  6. BETAMETHASONE. [Suspect]
     Active Substance: BETAMETHASONE
     Dosage: UNK,6 TIMES DAILY; EYE DROPS
     Route: 061

REACTIONS (6)
  - Iridocyclitis [Recovered/Resolved]
  - Corneal degeneration [Recovering/Resolving]
  - Cataract [Recovered/Resolved]
  - Cytomegalovirus infection [Recovered/Resolved]
  - Corneal oedema [Recovering/Resolving]
  - Corneal endotheliitis [Recovered/Resolved]
